FAERS Safety Report 18130736 (Version 1)
Quarter: 2020Q3

REPORT INFORMATION
  Report Type: Spontaneous
  Country: US (occurrence: US)
  Receive Date: 20200810
  Receipt Date: 20200810
  Transmission Date: 20201103
  Serious: Yes (Life-Threatening, Hospitalization)
  Sender: FDA-Public Use
  Company Number: US-CELLTRION-2020-US-015808

PATIENT
  Age: 25 Year
  Sex: Female

DRUGS (6)
  1. ALCOHOL. [Concomitant]
     Active Substance: ALCOHOL
  2. ZOLPIDEM [Suspect]
     Active Substance: ZOLPIDEM TARTRATE
  3. LAMOTRIGINE (NON?SPECIFIC) [Suspect]
     Active Substance: LAMOTRIGINE
     Indication: ANTIDEPRESSANT THERAPY
  4. COCAINE [Suspect]
     Active Substance: COCAINE
     Indication: SUBSTANCE ABUSE
  5. BUSPIRONE [Suspect]
     Active Substance: BUSPIRONE HYDROCHLORIDE
     Indication: SUBSTANCE ABUSE
  6. OXYCODONE [Suspect]
     Active Substance: OXYCODONE

REACTIONS (3)
  - Overdose [Unknown]
  - Serotonin syndrome [Unknown]
  - Stress cardiomyopathy [Recovered/Resolved]
